FAERS Safety Report 4450547-7 (Version None)
Quarter: 2004Q3

REPORT INFORMATION
  Report Type: 
  Country: None (occurrence: None)
  Receive Date: 20040914
  Receipt Date: 20040903
  Transmission Date: 20050211
  Serious: Yes (Death, Hospitalization)
  Sender: FDA-Public Use
  Company Number: STA-AE-04-MTX-399

PATIENT
  Age: 68 Year
  Sex: Female

DRUGS (1)
  1. METHOTREXATE [Suspect]
     Indication: RHEUMATOID ARTHRITIS

REACTIONS (16)
  - ANAEMIA [None]
  - ASCITES [None]
  - ASTHENIA [None]
  - DEPRESSED LEVEL OF CONSCIOUSNESS [None]
  - DIALYSIS [None]
  - DISSEMINATED INTRAVASCULAR COAGULATION [None]
  - ESCHERICHIA URINARY TRACT INFECTION [None]
  - GENERAL PHYSICAL HEALTH DETERIORATION [None]
  - LETHARGY [None]
  - MOUTH HAEMORRHAGE [None]
  - NEOPLASM MALIGNANT [None]
  - ORAL CANDIDIASIS [None]
  - OVARIAN DISORDER [None]
  - PETECHIAE [None]
  - RENAL FAILURE ACUTE [None]
  - SEPSIS [None]
